FAERS Safety Report 25226518 (Version 1)
Quarter: 2025Q2

REPORT INFORMATION
  Report Type: Spontaneous
  Country: US (occurrence: US)
  Receive Date: 20250422
  Receipt Date: 20250422
  Transmission Date: 20250716
  Serious: No
  Sender: PHARMALEX US CORPORATION
  Company Number: US-PharmaLex US Corporation-2175384

PATIENT
  Age: 68 Year
  Sex: Female

DRUGS (1)
  1. CYTALUX [Suspect]
     Active Substance: PAFOLACIANINE SODIUM
     Indication: Ovarian cancer
     Dates: start: 20250415, end: 20250415

REACTIONS (2)
  - Nausea [Unknown]
  - Vomiting [Unknown]
